FAERS Safety Report 9524524 (Version 1)
Quarter: 2013Q1

REPORT INFORMATION
  Report Type: Spontaneous
  Country: US (occurrence: None)
  Receive Date: 20130305
  Receipt Date: 20130305
  Transmission Date: 20140127
  Serious: Yes (Other)
  Sender: FDA-Public Use
  Company Number: 163-21880-12022377

PATIENT
  Age: 49 Year
  Sex: Male
  Weight: 95.26 kg

DRUGS (11)
  1. REVLIMID [Suspect]
     Indication: PLASMA CELL MYELOMA
     Dosage: 10 MG, 21 IN 21 D, PO
     Route: 048
     Dates: start: 20111202
  2. ACYCLOVIR (ACICLOVIR) (UNKNOWN)? [Concomitant]
  3. ASPIRIN (ACETYLSALICYLIC ACID) (UNKNOWN) (ACETYLSALICYLIC ACID) [Concomitant]
  4. DEXAMETHASONE (DEXAMETHASONE) (UNKNOWN) [Concomitant]
  5. LEXAPRO (ESCITALOPRAM OXALATE) (UNKNOWN) [Concomitant]
  6. METHADONE (METHADONE) (UNKNOWN) (METHADONE) [Concomitant]
  7. NEXIUM (ESOMEPRAZOLE) (UNKNOWN) [Concomitant]
  8. VELCADE [Concomitant]
  9. ZOFRAN (ONDANSETRON HYDROCHLORIDE) (UNKNOWN) [Concomitant]
  10. RAPAFLO (SILODOSIN) (UNKNOWN) [Concomitant]
  11. THORTAZIMIB (ALL OTHER THERAPEUTIC PRODUCTS) (UNKNOWN) [Concomitant]

REACTIONS (1)
  - Blood phosphorus decreased [None]
